FAERS Safety Report 18641113 (Version 4)
Quarter: 2021Q2

REPORT INFORMATION
  Report Type: Report from Study
  Country: None (occurrence: US)
  Receive Date: 20201221
  Receipt Date: 20210522
  Transmission Date: 20210717
  Serious: Yes (Other)
  Sender: FDA-Public Use
  Company Number: US-ABBVIE-20K-163-3699861-00

PATIENT
  Sex: Male

DRUGS (5)
  1. VENCLEXTA [Suspect]
     Active Substance: VENETOCLAX
     Dosage: TAKE 2 TABLET BY MOUTH ON DAY 2
     Route: 048
  2. VENCLEXTA [Suspect]
     Active Substance: VENETOCLAX
     Route: 048
  3. VENCLEXTA [Suspect]
     Active Substance: VENETOCLAX
     Indication: MYELODYSPLASTIC SYNDROME
     Dosage: TAKE 1 TABLET BY MOUTH ON DAY 1
     Route: 048
  4. VENCLEXTA [Suspect]
     Active Substance: VENETOCLAX
     Dosage: TAKE 4 TABLET(S) BY MOUTH DAILY FOR 14 DAYS , FOLLOWED BY 14 DAYS OFF (28 DAY CYCLE)
     Route: 048
     Dates: start: 20210427
  5. VENCLEXTA [Suspect]
     Active Substance: VENETOCLAX
     Dosage: TAKE 4 TABLET BY MOUTH DAILY FOR 12 DAYS FOLLOWED BY 14 DAYS OFF
     Route: 048

REACTIONS (2)
  - Off label use [Unknown]
  - Myelodysplastic syndrome [Unknown]
